FAERS Safety Report 12665004 (Version 3)
Quarter: 2017Q1

REPORT INFORMATION
  Report Type: Spontaneous
  Country: GB (occurrence: GB)
  Receive Date: 20160818
  Receipt Date: 20170322
  Transmission Date: 20170428
  Serious: Yes (Other)
  Sender: FDA-Public Use
  Company Number: GB-MYLANLABS-2016M1033826

PATIENT

DRUGS (8)
  1. ANASTROZOLE. [Suspect]
     Active Substance: ANASTROZOLE
     Dosage: UNK
     Dates: start: 2012, end: 2013
  2. ANASTROZOLE. [Suspect]
     Active Substance: ANASTROZOLE
     Dosage: UNK (8 WEEK)
  3. ARIMIDEX [Suspect]
     Active Substance: ANASTROZOLE
     Dosage: UNK
  4. OMEPRAZOLE                         /00661202/ [Concomitant]
     Dosage: UNK (FEW MONTHS)
     Dates: start: 2012, end: 2013
  5. ANASTROZOLE. [Suspect]
     Active Substance: ANASTROZOLE
     Dosage: UNK
     Dates: start: 201305, end: 201402
  6. ANASTROZOLE. [Suspect]
     Active Substance: ANASTROZOLE
     Dosage: UNK (8 WEEK)
  7. ANASTROZOLE. [Suspect]
     Active Substance: ANASTROZOLE
     Dosage: UNK (4 WEEK)
  8. ANASTROZOLE ACCORD [Suspect]
     Active Substance: ANASTROZOLE
     Dosage: UNK
     Dates: start: 201305, end: 201305

REACTIONS (28)
  - Paraesthesia oral [Unknown]
  - Disability [Unknown]
  - Movement disorder [Unknown]
  - Discomfort [Unknown]
  - Stress [Unknown]
  - Muscle tightness [Unknown]
  - Drug hypersensitivity [Unknown]
  - Drug level increased [Unknown]
  - Withdrawal syndrome [Unknown]
  - Overdose [Unknown]
  - Speech disorder [Unknown]
  - Fear [Unknown]
  - Product substitution issue [Unknown]
  - Emotional distress [Unknown]
  - Arthralgia [Unknown]
  - Hernia [Unknown]
  - Confusional state [Unknown]
  - Muscle disorder [Unknown]
  - Adverse drug reaction [Unknown]
  - Drug intolerance [Unknown]
  - Mental disorder [Recovered/Resolved]
  - Myalgia [Unknown]
  - Lip swelling [Unknown]
  - Swollen tongue [Unknown]
  - Abasia [Unknown]
  - Menopausal symptoms [Unknown]
  - Anxiety [Unknown]
  - Arthritis [Unknown]
